FAERS Safety Report 5262875-6 (Version None)
Quarter: 2007Q1

REPORT INFORMATION
  Report Type: 
  Country: None (occurrence: None)
  Receive Date: 20070312
  Receipt Date: 20070228
  Transmission Date: 20070707
  Serious: Yes (Other)
  Sender: FDA-Public Use
  Company Number: JP-NOVOPROD-261280

PATIENT
  Age: 82 Year
  Sex: Female
  Weight: 46 kg

DRUGS (4)
  1. PENFILL R CHU [Suspect]
     Indication: DIABETES MELLITUS INSULIN-DEPENDENT
     Dosage: 18 IU, QD
     Route: 058
     Dates: start: 19890601, end: 20020802
  2. PENFILL N CHU [Suspect]
     Indication: DIABETES MELLITUS INSULIN-DEPENDENT
     Dosage: 6 IU, QD
     Route: 058
     Dates: start: 19890601, end: 20061020
  3. LANTUS [Concomitant]
     Dosage: 6 IU, QD
     Route: 058
     Dates: start: 20061020
  4. NOVORAPID CHU [Concomitant]
     Dosage: 14 IU, QD
     Route: 058
     Dates: start: 20020802

REACTIONS (1)
  - LIPODYSTROPHY ACQUIRED [None]
